FAERS Safety Report 20312406 (Version 1)
Quarter: 2022Q1

REPORT INFORMATION
  Report Type: Spontaneous
  Country: US (occurrence: None)
  Receive Date: 20220107
  Receipt Date: 20220107
  Transmission Date: 20220423
  Serious: Yes (Hospitalization)
  Sender: FDA-Public Use
  Company Number: None

PATIENT
  Age: 41 Year
  Sex: Female

DRUGS (1)
  1. BEXAROTENE [Suspect]
     Active Substance: BEXAROTENE
     Dosage: OTHER QUANTITY : 6 CAPSULES;?FREQUENCY : DAILY;?
     Route: 048
     Dates: start: 202111, end: 202112

REACTIONS (3)
  - Cholecystitis infective [None]
  - SARS-CoV-2 test positive [None]
  - Pneumonia [None]

NARRATIVE: CASE EVENT DATE: 20211203
